FAERS Safety Report 9110324 (Version 2)
Quarter: 2013Q2

REPORT INFORMATION
  Report Type: Spontaneous
  Country: US (occurrence: US)
  Receive Date: 20130222
  Receipt Date: 20130426
  Transmission Date: 20140414
  Serious: Yes (Hospitalization, Other)
  Sender: FDA-Public Use
  Company Number: US-BAYER-2013-022430

PATIENT
  Age: 28 Year
  Sex: Female
  Weight: 68.49 kg

DRUGS (1)
  1. MIRENA [Suspect]
     Indication: CONTRACEPTION
     Dosage: 20 MCG/24HR, CONT
     Route: 015
     Dates: start: 20121221, end: 20130201

REACTIONS (20)
  - Procedural pain [Recovered/Resolved]
  - Uterine perforation [None]
  - Suppressed lactation [None]
  - Sepsis [None]
  - Intestinal perforation [None]
  - Gastrointestinal inflammation [None]
  - Nausea [None]
  - Abdominal pain [None]
  - Presyncope [None]
  - Hypotension [None]
  - Flatulence [None]
  - Vomiting [None]
  - Abdominal tenderness [None]
  - Gastrointestinal sounds abnormal [None]
  - Diarrhoea [None]
  - Eructation [None]
  - Swelling [None]
  - Body temperature increased [None]
  - Tachycardia [None]
  - Incision site cellulitis [None]
